FAERS Safety Report 20795583 (Version 1)
Quarter: 2022Q2

REPORT INFORMATION
  Report Type: Spontaneous
  Country: NO (occurrence: NO)
  Receive Date: 20220506
  Receipt Date: 20220506
  Transmission Date: 20220720
  Serious: Yes (Other)
  Sender: FDA-Public Use
  Company Number: None

PATIENT
  Age: 65 Year
  Sex: Male
  Weight: 69 kg

DRUGS (2)
  1. PREDNISOLONE [Suspect]
     Active Substance: PREDNISOLONE
     Indication: Antiinflammatory therapy
     Dosage: STRENGTH: 20 MG, DURATION 10 MONTHS, H02AB06 - PREDNISOLON -SUBTANCE NAME : PREDNISOLONE ,
     Route: 048
     Dates: start: 20180301, end: 201901
  2. PANTOPRAZOLE [Concomitant]
     Active Substance: PANTOPRAZOLE
     Indication: Product used for unknown indication
     Dosage: PANTOPRAZOLE KRKA ENTEROTAB 20 MG, DURATION 10 MONTH
     Dates: start: 201803, end: 201901

REACTIONS (3)
  - Angina pectoris [Not Recovered/Not Resolved]
  - Cardiac fibrillation [Recovered/Resolved with Sequelae]
  - Hypertension [Not Recovered/Not Resolved]

NARRATIVE: CASE EVENT DATE: 20180301
